FAERS Safety Report 11497227 (Version 3)
Quarter: 2016Q4

REPORT INFORMATION
  Report Type: Report from Study
  Country: US (occurrence: US)
  Receive Date: 20150911
  Receipt Date: 20161230
  Transmission Date: 20170206
  Serious: Yes (Hospitalization)
  Sender: FDA-Public Use
  Company Number: US-PFIZER INC-2015297289

PATIENT
  Age: 12 Year
  Sex: Female
  Weight: 28.5 kg

DRUGS (26)
  1. DEXAMETHASONE SODIUM PHOSPHATE. [Concomitant]
     Active Substance: DEXAMETHASONE SODIUM PHOSPHATE
     Dosage: 5 MG/M2, CYCLIC, TWICE DAILY, DAY 1-5, COURSE B
     Route: 048
     Dates: start: 20141128, end: 20141203
  2. IFOSFAMIDE. [Concomitant]
     Active Substance: IFOSFAMIDE
     Indication: ANAPLASTIC LARGE-CELL LYMPHOMA
     Dosage: 800 MG/M2, CYCLIC, DAY 1-5, COURSE A
     Route: 042
     Dates: start: 20141026, end: 20141104
  3. METHOTREXATE SODIUM. [Concomitant]
     Active Substance: METHOTREXATE SODIUM
     Dosage: 3000 MG/M2, CYCLIC, DAY 1 COURSE A
     Route: 042
     Dates: start: 20141026, end: 20141026
  4. VP-16 [Concomitant]
     Active Substance: ETOPOSIDE
     Indication: ANAPLASTIC LARGE-CELL LYMPHOMA
     Dosage: COURSE A: 100 MG/M2, OVER 2 HOURS ON DAYS 4 AND 5
     Route: 042
  5. CRIZOTINIB [Suspect]
     Active Substance: CRIZOTINIB
     Indication: ANAPLASTIC LARGE-CELL LYMPHOMA
     Dosage: COURSE A: 165 MG/M2, TWICE DAILY ON DAYS 1-21 (CYCLE 21 DAYS)
     Route: 048
     Dates: start: 20141026
  6. GRANISETRON [Concomitant]
     Active Substance: GRANISETRON
  7. MORPHINE [Concomitant]
     Active Substance: MORPHINE
  8. OXYCODONE [Concomitant]
     Active Substance: OXYCODONE
  9. CYTARABINE. [Concomitant]
     Active Substance: CYTARABINE
     Indication: ANAPLASTIC LARGE-CELL LYMPHOMA
     Dosage: PROPHASE: 15-24MG CYCLIC, DAY 1
     Route: 037
  10. CYTARABINE. [Concomitant]
     Active Substance: CYTARABINE
     Dosage: 150 MG/M2, CYCLIC, EVERY 12 HOURS, DAY 4-5 COURSE A
     Route: 042
     Dates: end: 20141104
  11. RANITIDINE. [Concomitant]
     Active Substance: RANITIDINE
  12. CRIZOTINIB [Suspect]
     Active Substance: CRIZOTINIB
     Dosage: COURSE B: 165 MG/M2, TWICE DAILY ON DAYS 1-21 (CYCLE 21 DAYS)
     Route: 048
     Dates: start: 20141128, end: 20141218
  13. DEXAMETHASONE SODIUM PHOSPHATE. [Concomitant]
     Active Substance: DEXAMETHASONE SODIUM PHOSPHATE
     Dosage: 5 MG/M2, CYCLIC, TWICE DAILY, DAY 1-5, COURSE A
     Route: 048
     Dates: start: 20141026
  14. CYCLOPHOSPHAMIDE. [Concomitant]
     Active Substance: CYCLOPHOSPHAMIDE
     Indication: ANAPLASTIC LARGE-CELL LYMPHOMA
     Dosage: PROPHASE: 200 MG/M2, CYCLIC, ON DAY 1-2
     Route: 042
  15. CYCLOPHOSPHAMIDE. [Concomitant]
     Active Substance: CYCLOPHOSPHAMIDE
     Dosage: COURSE B: 200 MG/M2, CYCLIC, DAY 1-5
     Route: 042
     Dates: start: 20141128, end: 20141202
  16. HYDROCORTISONE. [Concomitant]
     Active Substance: HYDROCORTISONE
     Indication: ANAPLASTIC LARGE-CELL LYMPHOMA
     Dosage: PROPHASE: 7.5-12MG CYCLIC DAY 1
     Route: 037
     Dates: start: 20141026, end: 20141026
  17. METHOTREXATE SODIUM. [Concomitant]
     Active Substance: METHOTREXATE SODIUM
     Indication: ANAPLASTIC LARGE-CELL LYMPHOMA
     Dosage: PROPHASE: 7.5-12MG, CYCLIC, ON DAY 1
     Route: 037
  18. DOXORUBICIN HYDROCHLORIDE. [Concomitant]
     Active Substance: DOXORUBICIN HYDROCHLORIDE
     Indication: ANAPLASTIC LARGE-CELL LYMPHOMA
     Dosage: 25 MG/M2, CYCLIC, COURSE B, DAY 4-5
     Route: 042
     Dates: start: 20141201, end: 20141202
  19. COTRIMOXAZOLE [Concomitant]
     Active Substance: SULFAMETHOXAZOLE\TRIMETHOPRIM
  20. DIPHENHYDRAMINE HCL [Concomitant]
     Active Substance: DIPHENHYDRAMINE HYDROCHLORIDE
  21. OMEPRAZOLE. [Concomitant]
     Active Substance: OMEPRAZOLE
  22. SENNOSIDES. [Concomitant]
     Active Substance: SENNOSIDES
  23. DEXAMETHASONE SODIUM PHOSPHATE. [Concomitant]
     Active Substance: DEXAMETHASONE SODIUM PHOSPHATE
     Indication: ANAPLASTIC LARGE-CELL LYMPHOMA
     Dosage: PROPHASE: 5 MG/M2, CYCLIC, DAILY ON DAY 1-2
     Route: 048
  24. PROMETHAZINE [Concomitant]
     Active Substance: PROMETHAZINE\PROMETHAZINE HYDROCHLORIDE
  25. DEXAMETHASONE SODIUM PHOSPHATE. [Concomitant]
     Active Substance: DEXAMETHASONE SODIUM PHOSPHATE
     Dosage: PROPHASE: 5 MG/M2, CYCLIC, TWICE DAILY, DAY 3-5
     Route: 048
  26. METHOTREXATE SODIUM. [Concomitant]
     Active Substance: METHOTREXATE SODIUM
     Dosage: 3000 MG/M2, CYCLIC DAY 1, COURSE B
     Route: 042
     Dates: start: 20141128, end: 20141129

REACTIONS (1)
  - Embolism [Not Recovered/Not Resolved]

NARRATIVE: CASE EVENT DATE: 20141219
